FAERS Safety Report 5338800-6 (Version None)
Quarter: 2007Q2

REPORT INFORMATION
  Report Type: 
  Country: None (occurrence: None)
  Receive Date: 20070530
  Receipt Date: 20070518
  Transmission Date: 20071010
  Serious: Yes (Hospitalization)
  Sender: FDA-Public Use
  Company Number: PHBS2007JP01629

PATIENT
  Age: 67 Year
  Sex: Female

DRUGS (4)
  1. DIOVAN [Suspect]
     Indication: HYPERTENSION
     Dosage: 40 MG/DAY
     Route: 048
     Dates: start: 20021001, end: 20070201
  2. DIOVAN [Suspect]
     Dosage: 80 MG/DAY
     Route: 048
     Dates: end: 20070201
  3. AMLODIN [Concomitant]
     Dosage: 2.5 MG/DAY
     Route: 048
     Dates: start: 20031001, end: 20031101
  4. CALSLOT [Concomitant]
     Dosage: 5 MG/DAY
     Route: 048
     Dates: start: 20031101

REACTIONS (2)
  - HEPATITIS C [None]
  - THROMBOCYTOPENIA [None]
